FAERS Safety Report 12803194 (Version 1)
Quarter: 2016Q4

REPORT INFORMATION
  Report Type: Spontaneous
  Country: US (occurrence: US)
  Receive Date: 20161003
  Receipt Date: 20161003
  Transmission Date: 20170207
  Serious: No
  Sender: FDA-Public Use
  Company Number: US-MISSION PHARMACAL COMPANY-1057927

PATIENT
  Age: 54 Year
  Sex: Female

DRUGS (2)
  1. GABAPENTIN. [Concomitant]
     Active Substance: GABAPENTIN
     Route: 065
  2. THIOLA [Suspect]
     Active Substance: TIOPRONIN
     Indication: CYSTINURIA
     Route: 065
     Dates: start: 20160803

REACTIONS (9)
  - Cardiac disorder [Unknown]
  - Insomnia [Unknown]
  - Drug dose omission [Unknown]
  - Pyrexia [Unknown]
  - Hypersensitivity [Unknown]
  - Nausea [Recovering/Resolving]
  - Anxiety [Unknown]
  - Formication [Unknown]
  - Hyperhidrosis [Unknown]
